FAERS Safety Report 19222433 (Version 1)
Quarter: 2021Q2

REPORT INFORMATION
  Report Type: Spontaneous
  Country: US (occurrence: US)
  Receive Date: 20210506
  Receipt Date: 20210506
  Transmission Date: 20210717
  Serious: Yes (Hospitalization)
  Sender: FDA-Public Use
  Company Number: None

PATIENT
  Age: 72 Year
  Sex: Female
  Weight: 57.6 kg

DRUGS (4)
  1. VITAMIN B [Concomitant]
     Active Substance: VITAMIN B
  2. MULTIVITAMIN [Concomitant]
     Active Substance: VITAMINS
  3. CIPRO [Suspect]
     Active Substance: CIPROFLOXACIN HYDROCHLORIDE
     Indication: URINARY TRACT INFECTION
     Dosage: ?          QUANTITY:1 TABLET(S);?
     Route: 048
  4. MAGNESIUM [Concomitant]
     Active Substance: MAGNESIUM

REACTIONS (10)
  - Insomnia [None]
  - Feeling abnormal [None]
  - Headache [None]
  - Pain [None]
  - Neuralgia [None]
  - Pyrexia [None]
  - Decreased appetite [None]
  - Nervous system disorder [None]
  - Weight decreased [None]
  - Erythema [None]

NARRATIVE: CASE EVENT DATE: 20140202
